FAERS Safety Report 7803146-0 (Version None)
Quarter: 2011Q4

REPORT INFORMATION
  Report Type: 
  Country: None (occurrence: None)
  Receive Date: 20111007
  Receipt Date: 20110121
  Transmission Date: 20120403
  Serious: No
  Sender: FDA-Public Use
  Company Number: US-ABBOTT-11P-163-0700504-00

PATIENT
  Sex: Female

DRUGS (3)
  1. KALETRA [Suspect]
     Indication: HIV INFECTION
     Dates: start: 20101201
  2. PRENATAL VITAMINS [Concomitant]
     Indication: VITAMIN SUPPLEMENTATION
  3. UNKNOWN HIV MEDICATION [Concomitant]
     Indication: HIV INFECTION

REACTIONS (2)
  - HYPOGLYCAEMIA [None]
  - HEADACHE [None]
